FAERS Safety Report 4537011-1 (Version None)
Quarter: 2004Q4

REPORT INFORMATION
  Report Type: 
  Country: None (occurrence: None)
  Receive Date: 20041220
  Receipt Date: 20041207
  Transmission Date: 20050328
  Serious: Yes (Death, Life-Threatening)
  Sender: FDA-Public Use
  Company Number: 200410566BYL

PATIENT
  Age: 78 Year
  Sex: Female

DRUGS (15)
  1. GLUCOBAY [Suspect]
     Indication: DIABETES MELLITUS
     Dosage: 50 MG, TID, ORAL
     Route: 048
     Dates: start: 20041005, end: 20041010
  2. OPALMON [Concomitant]
  3. ASASION [Concomitant]
  4. MEDIPEACE [Concomitant]
  5. KINEDAK [Concomitant]
  6. FK [Concomitant]
  7. MUCODYNE [Concomitant]
  8. HIBON [Concomitant]
  9. PYDOXAL [Concomitant]
  10. ITOROL [Concomitant]
  11. BUFFERIN [Concomitant]
  12. FUROSEMIDE [Concomitant]
  13. ALDACTONE-A [Concomitant]
  14. INFREE S [Concomitant]
  15. CALCIUM LACTATE [Concomitant]

REACTIONS (17)
  - ABDOMINAL DISTENSION [None]
  - ARTHRALGIA [None]
  - CARDIAC FAILURE [None]
  - CHEST PAIN [None]
  - COMA [None]
  - COMA HEPATIC [None]
  - COMMUNICATION DISORDER [None]
  - CYTOLYTIC HEPATITIS [None]
  - DEPRESSED LEVEL OF CONSCIOUSNESS [None]
  - DYSPEPSIA [None]
  - FEELING ABNORMAL [None]
  - HAEMODIALYSIS [None]
  - HEPATITIS FULMINANT [None]
  - HEPATORENAL SYNDROME [None]
  - NAUSEA [None]
  - PROTHROMBIN TIME SHORTENED [None]
  - SHOCK [None]
